FAERS Safety Report 10013063 (Version 2)
Quarter: 2014Q2

REPORT INFORMATION
  Report Type: Spontaneous
  Country: US (occurrence: US)
  Receive Date: 20140314
  Receipt Date: 20140409
  Transmission Date: 20141212
  Serious: No
  Sender: FDA-Public Use
  Company Number: US-PFIZER INC-2014073261

PATIENT
  Age: 16 Year
  Sex: Female

DRUGS (4)
  1. GENOTROPIN [Suspect]
     Indication: HYPOPITUITARISM
     Dosage: 1.4 MG, 7 DAYS PER WEEK
     Route: 058
  2. SYNTHROID [Concomitant]
     Dosage: UNK
  3. RISPERDAL [Concomitant]
     Dosage: UNK
  4. CITALOPRAM [Concomitant]
     Dosage: UNK

REACTIONS (1)
  - Headache [Unknown]
